FAERS Safety Report 6882803-7 (Version None)
Quarter: 2010Q3

REPORT INFORMATION
  Report Type: 
  Country: None (occurrence: None)
  Receive Date: 20100729
  Receipt Date: 20100720
  Transmission Date: 20110219
  Serious: Yes (Hospitalization, Other)
  Sender: FDA-Public Use
  Company Number: US-JNJFOC-20100707764

PATIENT
  Age: 70 Year
  Sex: Female

DRUGS (9)
  1. TYLENOL W/ CODEINE NO. 3 [Suspect]
     Indication: MIGRAINE
     Dosage: 300 MG ACETAMINOPHEN + 30 MG CODEINE BUT 1 TO 2 PER MONTH MAXIMUM
     Route: 065
  2. ENALAPRIL [Concomitant]
     Route: 065
  3. SERTRALINE HYDROCHLORIDE [Concomitant]
     Route: 065
  4. CYCLOBENZAPRINE [Concomitant]
     Route: 065
  5. ATENOLOL [Concomitant]
     Route: 065
  6. CLONAZEPAM [Concomitant]
     Route: 065
  7. PHENERGAN [Concomitant]
     Route: 065
  8. PHENYTOIN [Concomitant]
     Route: 065
  9. UNKNOWN MEDICATION [Concomitant]
     Route: 065

REACTIONS (4)
  - FATIGUE [None]
  - INTERNATIONAL NORMALISED RATIO INCREASED [None]
  - LIVER DISORDER [None]
  - OVERDOSE [None]
